FAERS Safety Report 7015069-8 (Version None)
Quarter: 2010Q3

REPORT INFORMATION
  Report Type: 
  Country: None (occurrence: None)
  Receive Date: 20100922
  Receipt Date: 20100916
  Transmission Date: 20110219
  Serious: Yes (Other)
  Sender: FDA-Public Use
  Company Number: 2010SP049678

PATIENT
  Age: 10 Month
  Sex: Male

DRUGS (1)
  1. CHILDREN'S CLARITIN [Suspect]
     Indication: PRODUCT USED FOR UNKNOWN INDICATION
     Dosage: 10 MG; PO
     Route: 048

REACTIONS (2)
  - INCORRECT DOSE ADMINISTERED [None]
  - JAUNDICE [None]
